FAERS Safety Report 6906558-2 (Version None)
Quarter: 2010Q3

REPORT INFORMATION
  Report Type: 
  Country: None (occurrence: None)
  Receive Date: 20100804
  Receipt Date: 20100721
  Transmission Date: 20110219
  Serious: Yes (Hospitalization)
  Sender: FDA-Public Use
  Company Number: US-BAYER-201015447NA

PATIENT
  Age: 46 Year
  Sex: Female
  Weight: 54 kg

DRUGS (6)
  1. YAZ [Suspect]
     Indication: CONTRACEPTION
     Route: 048
     Dates: start: 20071201, end: 20080501
  2. DROSPIRENONE AND EHTINYL ESTRADIOL [Suspect]
     Dates: start: 20071201
  3. YASMIN [Suspect]
  4. ACCUTANE [Concomitant]
     Indication: ACNE
     Dates: start: 20080101, end: 20080601
  5. M-VIT [Concomitant]
     Route: 048
  6. AMNESTEEM [Concomitant]
     Route: 048

REACTIONS (6)
  - DEEP VEIN THROMBOSIS [None]
  - DYSPNOEA EXERTIONAL [None]
  - OEDEMA PERIPHERAL [None]
  - PAIN IN EXTREMITY [None]
  - PULMONARY EMBOLISM [None]
  - THROMBOSIS [None]
